FAERS Safety Report 10213001 (Version 2)
Quarter: 2014Q2

REPORT INFORMATION
  Report Type: Report from Study
  Country: TR (occurrence: TR)
  Receive Date: 20140602
  Receipt Date: 20140602
  Transmission Date: 20141212
  Serious: Yes (Death, Hospitalization)
  Sender: FDA-Public Use
  Company Number: TR-BRISTOL-MYERS SQUIBB COMPANY-19896364

PATIENT
  Age: 67 Year
  Sex: Male
  Weight: 70 kg

DRUGS (3)
  1. COUMADIN [Suspect]
     Indication: ATRIAL FIBRILLATION
     Route: 048
  2. METOPROLOL [Concomitant]
     Indication: ATRIAL FIBRILLATION
  3. DIGOXIN [Concomitant]
     Indication: ATRIAL FIBRILLATION

REACTIONS (3)
  - Death [Fatal]
  - Oedema [Unknown]
  - Dyspnoea [Unknown]
